FAERS Safety Report 20822811 (Version 22)
Quarter: 2023Q4

REPORT INFORMATION
  Report Type: Spontaneous
  Country: IN (occurrence: IN)
  Receive Date: 20220512
  Receipt Date: 20231220
  Transmission Date: 20240110
  Serious: Yes (Other)
  Sender: FDA-Public Use
  Company Number: IN-PFIZER INC-2021169880

PATIENT
  Age: 64 Year
  Sex: Female
  Weight: 70 kg

DRUGS (16)
  1. PALBOCICLIB [Suspect]
     Active Substance: PALBOCICLIB
     Indication: Breast cancer metastatic
     Dosage: 125 MG, 1X/DAY
     Route: 048
     Dates: start: 20210108
  2. PALBOCICLIB [Suspect]
     Active Substance: PALBOCICLIB
     Dosage: 125 MG, 1X/DAY
     Route: 048
     Dates: start: 20210112
  3. PALBOCICLIB [Suspect]
     Active Substance: PALBOCICLIB
     Dosage: 1-0-0 X 21/28 DAYS
     Route: 048
     Dates: start: 20210212, end: 20210304
  4. PALBOCICLIB [Suspect]
     Active Substance: PALBOCICLIB
     Dosage: 125 MG, 1X/DAY
     Route: 048
     Dates: start: 202104
  5. PALBOCICLIB [Suspect]
     Active Substance: PALBOCICLIB
     Dosage: 1-0-0 X 21/28 DAYS
     Route: 048
     Dates: start: 20211028, end: 20211117
  6. PALBOCICLIB [Suspect]
     Active Substance: PALBOCICLIB
     Dosage: 1-0-0 X 21/28 DAYS
     Route: 048
     Dates: start: 20220415
  7. PALBOCICLIB [Suspect]
     Active Substance: PALBOCICLIB
     Dosage: 1-0-0 X 21/28 DAYS
     Route: 048
     Dates: start: 20231211
  8. LETROZOLE [Concomitant]
     Active Substance: LETROZOLE
     Dosage: 2.5 MG, 1X/DAY (0-1-0)
  9. ZOLPIDEM TARTRATE [Concomitant]
     Active Substance: ZOLPIDEM TARTRATE
     Dosage: 5 MG, 1X/DAY (0-0-1)
  10. CALCINATE [CALCIUM CARBONATE] [Concomitant]
     Dosage: UNK, 2X/DAY (1-0-1)
  11. FULVESTRANT [Concomitant]
     Active Substance: FULVESTRANT
     Dosage: 500 MG
     Route: 030
  12. ASPIRIN\ATORVASTATIN [Concomitant]
     Active Substance: ASPIRIN\ATORVASTATIN
     Dosage: UNK
  13. NEFROSAVE [Concomitant]
     Dosage: UNK
  14. CAMPHOR\GLYCERIN\MENTHOL\ZINC OXIDE [Concomitant]
     Active Substance: CAMPHOR\GLYCERIN\MENTHOL\ZINC OXIDE
     Dosage: UNK
  15. BIONESP [Concomitant]
     Dosage: UNK
  16. FERRANIN COMPLEX [CYANOCOBALAMIN;FOLIC ACID;IRON] [Concomitant]
     Dosage: UNK

REACTIONS (48)
  - Multiple sclerosis [Unknown]
  - Platelet count decreased [Unknown]
  - Cholelithiasis [Unknown]
  - White blood cell count decreased [Unknown]
  - Neutrophil count decreased [Unknown]
  - Monocyte percentage increased [Unknown]
  - Neoplasm progression [Unknown]
  - Sleep disorder [Unknown]
  - Pruritus [Unknown]
  - Haemoglobin decreased [Unknown]
  - Arthralgia [Recovering/Resolving]
  - Urine flow decreased [Unknown]
  - Blood creatinine increased [Unknown]
  - Oxygen saturation decreased [Unknown]
  - Abdominal pain [Unknown]
  - Constipation [Unknown]
  - Fatigue [Unknown]
  - Weight increased [Recovering/Resolving]
  - Dyspnoea exertional [Recovering/Resolving]
  - Back pain [Unknown]
  - Protein urine present [Unknown]
  - Neutrophil percentage decreased [Unknown]
  - Gastritis [Unknown]
  - Cough [Recovering/Resolving]
  - Blood pressure increased [Unknown]
  - Chest discomfort [Unknown]
  - Blood urea increased [Unknown]
  - Heart rate increased [Unknown]
  - Pain [Unknown]
  - Dyspepsia [Unknown]
  - Pyrexia [Recovering/Resolving]
  - Paraesthesia [Unknown]
  - Lymphocyte percentage increased [Unknown]
  - Diverticulum intestinal [Unknown]
  - Hepatic lesion [Unknown]
  - Musculoskeletal chest pain [Unknown]
  - Body temperature decreased [Unknown]
  - Mouth ulceration [Unknown]
  - Sinus tachycardia [Unknown]
  - Hypophagia [Unknown]
  - Decreased appetite [Unknown]
  - Productive cough [Unknown]
  - Nocturia [Unknown]
  - Mean cell volume increased [Unknown]
  - Urine analysis abnormal [Unknown]
  - Axillary pain [Unknown]
  - Off label use [Unknown]
  - Product use issue [Unknown]

NARRATIVE: CASE EVENT DATE: 20210101
